FAERS Safety Report 5105366-5 (Version None)
Quarter: 2006Q3

REPORT INFORMATION
  Report Type: 
  Country: None (occurrence: None)
  Receive Date: 20060731
  Receipt Date: 20060327
  Transmission Date: 20061208
  Serious: Yes (Hospitalization)
  Sender: FDA-Public Use
  Company Number: US-JNJFOC-20060307088

PATIENT
  Age: 10 Year
  Sex: Female
  Weight: 29.9374 kg

DRUGS (3)
  1. RISPERDAL [Suspect]
     Indication: ABNORMAL BEHAVIOUR
     Dosage: 25 MG, IN 1 DAY, ORAL
     Route: 048
     Dates: start: 20051201
  2. RISPERDAL [Suspect]
     Indication: SUICIDE ATTEMPT
     Dosage: 25 MG, IN 1 DAY, ORAL
     Route: 048
     Dates: start: 20051201
  3. LITHIUM CARBONATE [Concomitant]

REACTIONS (3)
  - AMNESIA [None]
  - SUICIDE ATTEMPT [None]
  - WEIGHT INCREASED [None]
